FAERS Safety Report 8570266-5 (Version None)
Quarter: 2012Q3

REPORT INFORMATION
  Report Type: 
  Country: None (occurrence: None)
  Receive Date: 20120803
  Receipt Date: 20120801
  Transmission Date: 20120928
  Serious: Yes (Death)
  Sender: FDA-Public Use
  Company Number: CHPA2012US016819

PATIENT
  Sex: Male

DRUGS (1)
  1. EX-LAX UNKNOWN [Suspect]
     Dosage: UNK, UNK
     Route: 048

REACTIONS (1)
  - NEOPLASM MALIGNANT [None]
